FAERS Safety Report 4679009-9 (Version None)
Quarter: 2005Q2

REPORT INFORMATION
  Report Type: 
  Country: None (occurrence: None)
  Receive Date: 20050531
  Receipt Date: 20050518
  Transmission Date: 20051028
  Serious: Yes (Life-Threatening, Hospitalization)
  Sender: FDA-Public Use
  Company Number: HQWYE795419MAY05

PATIENT
  Age: 71 Year
  Sex: Male

DRUGS (16)
  1. TAZONAM (PIPERACILLIN/TAZOBACTAM, INJECTION) LOT NO.: A9V5/21 [Suspect]
     Indication: OTITIS EXTERNA
     Dosage: 4.5 G 2X PER 1 DAY, INTRAVENOUS
     Route: 042
     Dates: start: 20050420, end: 20050516
  2. CAPOZIDE 25/15 [Concomitant]
  3. DIAMICRON (GLICLAZIDE) [Concomitant]
  4. NEXIUM [Concomitant]
  5. AMITRIPTYLINE HCL [Concomitant]
  6. NEURONTIN [Concomitant]
  7. NORVASC [Concomitant]
  8. ZOCORD (SIMVASTATIN) [Concomitant]
  9. ACETYLSALICYLIC ACID [Concomitant]
  10. NOVALGIN (METAMIZOLE SODIUM) [Concomitant]
  11. HALCION [Concomitant]
  12. TIZANIDINE HCL [Concomitant]
  13. TENORETIC 100 [Concomitant]
  14. TRAMADOL HCL [Concomitant]
  15. NEROBION FORTE (CYANOCOBALAMIN/PYRIDOXINE HYDROCHLORIDE/THIAMINE DISUL [Concomitant]
  16. DIBONDRIN (DIPHENHYDRAMINE HYDROCHLORIDE [Concomitant]

REACTIONS (3)
  - COMA [None]
  - HEPATIC FAILURE [None]
  - RENAL FAILURE [None]
